FAERS Safety Report 17241592 (Version 1)
Quarter: 2020Q1

REPORT INFORMATION
  Report Type: Spontaneous
  Country: PT (occurrence: PT)
  Receive Date: 20200107
  Receipt Date: 20200107
  Transmission Date: 20200409
  Serious: Yes (Death, Hospitalization)
  Sender: FDA-Public Use
  Company Number: PT-MYLANLABS-2020M1000817

PATIENT
  Age: 69 Year
  Sex: Female

DRUGS (9)
  1. L-ASPARAGINASE [Suspect]
     Active Substance: ASPARAGINASE
     Indication: NATURAL KILLER-CELL LYMPHOBLASTIC LYMPHOMA
     Dosage: OVER 30 MINUTES ON DAY 8 OF A 28-DAY CYCLE; SMILE REGIMEN
     Route: 042
  2. ONDANSETRON [Concomitant]
     Active Substance: ONDANSETRON
     Indication: CHEMOTHERAPY TOXICITY ATTENUATION
     Dosage: ADMINISTERED 8/8 HOUR, DAYS 1-3
     Route: 042
  3. METHOTREXATE. [Suspect]
     Active Substance: METHOTREXATE
     Indication: NATURAL KILLER-CELL LYMPHOBLASTIC LYMPHOMA
     Dosage: OVER 6 HOURS ON DAY 1 OF A 28-DAY CYCLE; SMILE REGIMEN
     Route: 042
     Dates: start: 20151207
  4. IFOSFAMIDE. [Suspect]
     Active Substance: IFOSFAMIDE
     Indication: NATURAL KILLER-CELL LYMPHOBLASTIC LYMPHOMA
     Dosage: OVER 2 HOURS ON DAYS 2-4 OF A 28-DAY CYCLE; SMILE REGIMEN
     Route: 042
  5. L-ASPARAGINASE [Suspect]
     Active Substance: ASPARAGINASE
     Dosage: OVER 2 HOURS ON DAYS 8,10,12,14,16,18 AND 20 OF A 28-DAY CYCLE; SMILE REGIMEN
     Route: 042
  6. DEXAMETHASONE. [Suspect]
     Active Substance: DEXAMETHASONE
     Indication: NATURAL KILLER-CELL LYMPHOBLASTIC LYMPHOMA
     Dosage: ON DAYS 2-4 OF A 28-DAY CYCLE; SMILE REGIMEN
     Route: 048
  7. ETOPOSIDE. [Suspect]
     Active Substance: ETOPOSIDE
     Indication: NATURAL KILLER-CELL LYMPHOBLASTIC LYMPHOMA
     Dosage: OVER 2 HOURS ON DAYS 2-4 OF A 28-DAY CYCLE; SMILE REGIMEN
     Route: 042
  8. MESNA. [Concomitant]
     Active Substance: MESNA
     Indication: CHEMOTHERAPY TOXICITY ATTENUATION
     Dosage: 10-15 MINUTES PRIOR IFOSFAMIDE ON DAYS 2-4 AND 3, 6, AND 9 HOURS START OF IFOSFAMIDE ON DAYS 2-4
     Route: 042
  9. FOLINIC ACID [Concomitant]
     Active Substance: LEUCOVORIN
     Indication: CHEMOTHERAPY TOXICITY ATTENUATION
     Dosage: 36 HOURS AFTER START METHOTREXATE EVERY 6 HOURS UNTIL LEVEL 0.1 MICROMOL/L
     Route: 042

REACTIONS (4)
  - Multiple organ dysfunction syndrome [Fatal]
  - Infection [Fatal]
  - Pancytopenia [Fatal]
  - Pyrexia [Fatal]

NARRATIVE: CASE EVENT DATE: 2015
